FAERS Safety Report 15005016 (Version 1)
Quarter: 2018Q2

REPORT INFORMATION
  Report Type: Spontaneous
  Country: US (occurrence: US)
  Receive Date: 20180613
  Receipt Date: 20180613
  Transmission Date: 20180711
  Serious: No
  Sender: FDA-Public Use
  Company Number: US-COVIS PHARMA B.V.-2017COV01157

PATIENT
  Sex: Male

DRUGS (5)
  1. NEXIUM 24HR [Suspect]
     Active Substance: ESOMEPRAZOLE MAGNESIUM
     Dosage: 1 DOSAGE UNITS, 1X/DAY IN EVENING
     Dates: start: 2017, end: 20171202
  2. ASPIRIN. [Concomitant]
     Active Substance: ASPIRIN
  3. ALEVE [Concomitant]
     Active Substance: NAPROXEN SODIUM
  4. PRILOSEC [Suspect]
     Active Substance: OMEPRAZOLE MAGNESIUM
     Indication: GASTROOESOPHAGEAL REFLUX DISEASE
     Dosage: UNK
     Route: 048
     Dates: end: 201708
  5. NEXIUM 24HR [Suspect]
     Active Substance: ESOMEPRAZOLE MAGNESIUM
     Indication: GASTROOESOPHAGEAL REFLUX DISEASE
     Dosage: 2 DOSAGE UNITS, 1X/DAY
     Route: 048
     Dates: start: 201708, end: 20171202

REACTIONS (5)
  - Drug ineffective [Unknown]
  - Gastrooesophageal reflux disease [Unknown]
  - Haemoptysis [Recovered/Resolved]
  - Dysgeusia [Recovered/Resolved]
  - Gout [Unknown]

NARRATIVE: CASE EVENT DATE: 2017
